FAERS Safety Report 24928219 (Version 1)
Quarter: 2025Q1

REPORT INFORMATION
  Report Type: Spontaneous
  Country: IT (occurrence: IT)
  Receive Date: 20250205
  Receipt Date: 20250205
  Transmission Date: 20250409
  Serious: Yes (Death, Other)
  Sender: PFIZER
  Company Number: IT-PFIZER INC-202500023192

PATIENT
  Age: 64 Year
  Sex: Female

DRUGS (2)
  1. ELREXFIO [Suspect]
     Active Substance: ELRANATAMAB-BCMM
  2. ELREXFIO [Suspect]
     Active Substance: ELRANATAMAB-BCMM

REACTIONS (6)
  - Respiratory failure [Fatal]
  - Renal failure [Fatal]
  - Cytokine release syndrome [Recovered/Resolved]
  - Immune effector cell-associated neurotoxicity syndrome [Recovered/Resolved]
  - Cytomegalovirus infection reactivation [Not Recovered/Not Resolved]
  - Superinfection bacterial [Unknown]
